FAERS Safety Report 16764978 (Version 4)
Quarter: 2019Q4

REPORT INFORMATION
  Report Type: Spontaneous
  Country: BR (occurrence: BR)
  Receive Date: 20190903
  Receipt Date: 20191122
  Transmission Date: 20200122
  Serious: Yes (Life-Threatening, Hospitalization)
  Sender: FDA-Public Use
  Company Number: BR-BIOVITRUM-2019BR2708

PATIENT
  Age: 8 Year
  Sex: Male
  Weight: 34 kg

DRUGS (1)
  1. NITISINONE [Suspect]
     Active Substance: NITISINONE
     Indication: TYROSINAEMIA
     Dosage: 1,17MG/KQ/DAY
     Dates: start: 20110901

REACTIONS (3)
  - Liver transplant [Recovered/Resolved]
  - Therapy cessation [Unknown]
  - Cytomegalovirus infection [Unknown]

NARRATIVE: CASE EVENT DATE: 20190429
